FAERS Safety Report 6903560-1 (Version None)
Quarter: 2010Q3

REPORT INFORMATION
  Report Type: 
  Country: None (occurrence: None)
  Receive Date: 20100708
  Receipt Date: 20091105
  Transmission Date: 20110219
  Serious: Yes (Other)
  Sender: FDA-Public Use
  Company Number: 2006110075

PATIENT
  Age: 59 Year
  Sex: Female
  Weight: 80.3 kg

DRUGS (4)
  1. CHANTIX [Suspect]
     Indication: SMOKING CESSATION THERAPY
     Dosage: 1 MG, 2X/DAY, ORAL
     Route: 048
     Dates: start: 20060801
  2. CHANTIX [Suspect]
     Indication: SMOKING CESSATION THERAPY
     Dosage: 1 MG, 2X/DAY, ORAL
     Route: 048
     Dates: start: 20091001
  3. KLONOPIN [Concomitant]
  4. ZYPREXA [Concomitant]

REACTIONS (6)
  - AGITATION [None]
  - DEPRESSION [None]
  - DYSPHAGIA [None]
  - HOSTILITY [None]
  - HYPERSOMNIA [None]
  - SUICIDAL BEHAVIOUR [None]
